FAERS Safety Report 9474119 (Version 1)
Quarter: 2013Q3

REPORT INFORMATION
  Report Type: Spontaneous
  Country: US (occurrence: US)
  Receive Date: 20130823
  Receipt Date: 20130823
  Transmission Date: 20140515
  Serious: No
  Sender: FDA-Public Use
  Company Number: US-009507513-1308USA007317

PATIENT
  Sex: 0
  Weight: 73.83 kg

DRUGS (2)
  1. NEXPLANON [Suspect]
     Dosage: 68 MG, ONE ROD
     Route: 059
     Dates: start: 20130805, end: 20130805
  2. NEXPLANON [Suspect]
     Dosage: UNK
     Dates: start: 20130805

REACTIONS (3)
  - Device difficult to use [Recovered/Resolved]
  - No adverse event [Unknown]
  - Product quality issue [Unknown]
